FAERS Safety Report 19004656 (Version 31)
Quarter: 2025Q4

REPORT INFORMATION
  Report Type: Report from Study
  Country: US (occurrence: US)
  Receive Date: 20210312
  Receipt Date: 20251215
  Transmission Date: 20260117
  Serious: Yes (Hospitalization, Other)
  Sender: TAKEDA
  Company Number: US-TAKEDA-US202029007

PATIENT
  Age: 68 Year
  Sex: Female

DRUGS (24)
  1. LANADELUMAB [Suspect]
     Active Substance: LANADELUMAB
     Indication: Immune system disorder
     Dosage: 2 MILLILITER, Q2WEEKS
     Dates: start: 202004
  2. LANADELUMAB [Suspect]
     Active Substance: LANADELUMAB
     Dosage: 300 MILLIGRAM, Q2WEEKS
     Dates: start: 20200409, end: 20210928
  3. LANADELUMAB [Suspect]
     Active Substance: LANADELUMAB
     Dosage: 2 MILLILITER, Q2WEEKS
     Dates: start: 20200413
  4. LANADELUMAB [Suspect]
     Active Substance: LANADELUMAB
     Dosage: 300 MILLIGRAM, Q2WEEKS
     Dates: start: 20200414
  5. LANADELUMAB [Suspect]
     Active Substance: LANADELUMAB
     Dosage: 300 MILLIGRAM, Q2WEEKS
     Dates: start: 20201018
  6. LANADELUMAB [Suspect]
     Active Substance: LANADELUMAB
     Dosage: 2 MILLILITER, Q2WEEKS
  7. LANADELUMAB [Suspect]
     Active Substance: LANADELUMAB
     Dosage: 300 MILLIGRAM, Q2WEEKS
  8. LANADELUMAB [Suspect]
     Active Substance: LANADELUMAB
     Dosage: 300MG/2ML, Q2WEEKS
     Dates: start: 202506
  9. LANADELUMAB [Suspect]
     Active Substance: LANADELUMAB
     Dosage: 300 MILLIGRAM, Q2WEEKS
  10. FIRAZYR [Suspect]
     Active Substance: ICATIBANT ACETATE
     Indication: Immune system disorder
     Dosage: 30 MILLIGRAM
  11. FIRAZYR [Suspect]
     Active Substance: ICATIBANT ACETATE
     Indication: Hereditary angioedema
     Dosage: 30 MILLIGRAM
  12. FIRAZYR [Suspect]
     Active Substance: ICATIBANT ACETATE
     Dosage: 30 MILLIGRAM
  13. FIRAZYR [Suspect]
     Active Substance: ICATIBANT ACETATE
     Dosage: 30 MILLIGRAM
  14. FIRAZYR [Suspect]
     Active Substance: ICATIBANT ACETATE
     Dosage: UNK
  15. FIRAZYR [Suspect]
     Active Substance: ICATIBANT ACETATE
     Dosage: 30 MILLIGRAM
  16. FIRAZYR [Suspect]
     Active Substance: ICATIBANT ACETATE
     Dosage: 30 MILLIGRAM
  17. ORLADEYO [Suspect]
     Active Substance: BEROTRALSTAT HYDROCHLORIDE
     Indication: Hereditary angioedema
     Dosage: UNK
  18. BERINERT [Concomitant]
     Active Substance: HUMAN C1-ESTERASE INHIBITOR
     Dosage: UNK
  19. ALBUTEROL [Concomitant]
     Active Substance: ALBUTEROL
     Dosage: UNK
  20. ATORVASTATIN CALCIUM [Concomitant]
     Active Substance: ATORVASTATIN CALCIUM
     Dosage: UNK
  21. ASPIRIN [Concomitant]
     Active Substance: ASPIRIN
     Dosage: UNK
  22. BUMETANIDE [Concomitant]
     Active Substance: BUMETANIDE
     Dosage: UNK
  23. CALCIUM [Concomitant]
     Active Substance: CALCIUM
     Dosage: UNK
  24. BUSPIRONE HCL [Concomitant]
     Active Substance: BUSPIRONE HYDROCHLORIDE
     Dosage: UNK

REACTIONS (22)
  - COVID-19 [Recovered/Resolved]
  - Cataract [Unknown]
  - Dyspnoea [Unknown]
  - Diarrhoea [Not Recovered/Not Resolved]
  - Pneumonia [Unknown]
  - Hereditary angioedema [Unknown]
  - Scan myocardial perfusion abnormal [Unknown]
  - Hernia [Unknown]
  - Post procedural complication [Unknown]
  - Vomiting [Unknown]
  - Abdominal pain upper [Unknown]
  - Dehydration [Unknown]
  - Drug hypersensitivity [Unknown]
  - Abdominal discomfort [Unknown]
  - Cold sweat [Unknown]
  - Gastroenteritis viral [Unknown]
  - Stress [Unknown]
  - Weight decreased [Unknown]
  - Product availability issue [Unknown]
  - Injection site pain [Recovered/Resolved]
  - Dizziness [Unknown]
  - Weight increased [Unknown]

NARRATIVE: CASE EVENT DATE: 20210330
